FAERS Safety Report 4284595-7 (Version None)
Quarter: 2004Q1

REPORT INFORMATION
  Report Type: 
  Country: None (occurrence: None)
  Receive Date: 20040130
  Receipt Date: 20040114
  Transmission Date: 20041129
  Serious: Yes (Hospitalization)
  Sender: FDA-Public Use
  Company Number: EWC040137654

PATIENT
  Age: 57 Year
  Sex: Female

DRUGS (5)
  1. GEMCITABINE HYDROCHLORIDE-IV (GEMCITABINE) [Suspect]
     Indication: LUNG NEOPLASM MALIGNANT
     Dosage: 1250 MG/M2/2
     Dates: start: 20031110, end: 20031119
  2. LITICAN (ALIZAPRIDE) [Concomitant]
  3. BICODONE (HYDROCODONE BITARTRATE) [Concomitant]
  4. PARACETAMOL [Concomitant]
  5. MEDROL [Concomitant]

REACTIONS (15)
  - ALANINE AMINOTRANSFERASE INCREASED [None]
  - ARTHRALGIA [None]
  - ASPARTATE AMINOTRANSFERASE INCREASED [None]
  - BLOOD LACTATE DEHYDROGENASE INCREASED [None]
  - DIFFICULTY IN WALKING [None]
  - DYSURIA [None]
  - FACE OEDEMA [None]
  - HAEMATURIA [None]
  - HAEMOGLOBINURIA [None]
  - HYPOCALCAEMIA [None]
  - HYPONATRAEMIA [None]
  - OEDEMA PERIPHERAL [None]
  - PAIN IN EXTREMITY [None]
  - RHABDOMYOLYSIS [None]
  - THROMBOCYTOPENIA [None]
